FAERS Safety Report 8654022 (Version 2)
Quarter: 2013Q2

REPORT INFORMATION
  Report Type: Spontaneous
  Country: TR (occurrence: TR)
  Receive Date: 20120709
  Receipt Date: 20130614
  Transmission Date: 20140414
  Serious: Yes (Life-Threatening, Hospitalization)
  Sender: FDA-Public Use
  Company Number: TR-PFIZER INC-2012161185

PATIENT
  Age: 67 Year
  Sex: Female
  Weight: 65 kg

DRUGS (3)
  1. PANTPAS [Suspect]
     Indication: SURGERY
     Dosage: 40 MG, 1X/DAY (1 DF 1 IN 1D)
     Route: 048
     Dates: start: 20120516, end: 20120518
  2. XEFO [Suspect]
     Indication: SURGERY
     Dosage: 8 MG, 2X/DAY
     Route: 048
     Dates: start: 20120516, end: 20120517
  3. CIPRO [Concomitant]
     Indication: INFECTION PROPHYLAXIS
     Dosage: 2 DF, 1X/DAY
     Route: 048
     Dates: start: 20120514, end: 20120519

REACTIONS (1)
  - Nephrotic syndrome [Not Recovered/Not Resolved]
